FAERS Safety Report 6585339-6 (Version None)
Quarter: 2010Q1

REPORT INFORMATION
  Report Type: 
  Country: None (occurrence: None)
  Receive Date: 20100217
  Receipt Date: 20100210
  Transmission Date: 20100710
  Serious: Yes (Other)
  Sender: FDA-Public Use
  Company Number: US-JNJFOC-20090900569

PATIENT
  Sex: Female
  Weight: 53.98 kg

DRUGS (4)
  1. LEVAQUIN [Suspect]
     Indication: ACUTE SINUSITIS
     Route: 048
     Dates: start: 20090626, end: 20090629
  2. SYNTHROID [Concomitant]
     Indication: HYPOTHYROIDISM
     Route: 065
  3. CRESTOR [Concomitant]
     Indication: BLOOD CHOLESTEROL INCREASED
     Route: 065
     Dates: start: 20060101
  4. ESTRATEST [Concomitant]
     Indication: POSTMENOPAUSE
     Route: 065

REACTIONS (11)
  - ALOPECIA [None]
  - ARTHRALGIA [None]
  - BODY TEMPERATURE FLUCTUATION [None]
  - DYSGEUSIA [None]
  - NEUROPATHY PERIPHERAL [None]
  - OROPHARYNGEAL BLISTERING [None]
  - PHOTOSENSITIVITY REACTION [None]
  - RASH MACULO-PAPULAR [None]
  - SWELLING [None]
  - TINNITUS [None]
  - TREMOR [None]
